FAERS Safety Report 5504856-0 (Version None)
Quarter: 2007Q4

REPORT INFORMATION
  Report Type: 
  Country: None (occurrence: None)
  Receive Date: 20071102
  Receipt Date: 20071029
  Transmission Date: 20080405
  Serious: Yes (Other)
  Sender: FDA-Public Use
  Company Number: PHRM2007FR02399

PATIENT
  Sex: Female

DRUGS (1)
  1. ZOMETA [Suspect]
     Indication: COMPLEX REGIONAL PAIN SYNDROME
     Dosage: 1 INFUSION/MONTH
     Dates: start: 20060501, end: 20061101

REACTIONS (4)
  - BONE DEBRIDEMENT [None]
  - GINGIVAL PAIN [None]
  - OSTEONECROSIS [None]
  - PURULENT DISCHARGE [None]
